FAERS Safety Report 6393614-3 (Version None)
Quarter: 2009Q4

REPORT INFORMATION
  Report Type: 
  Country: None (occurrence: None)
  Receive Date: 20091008
  Receipt Date: 20090928
  Transmission Date: 20100525
  Serious: Yes (Other)
  Sender: FDA-Public Use
  Company Number: JP-PFIZER INC-2009276675

PATIENT
  Age: 73 Year

DRUGS (7)
  1. SELARA [Suspect]
     Dosage: 50 MG, 1X/DAY
     Route: 048
     Dates: start: 20090721, end: 20090825
  2. OLMETEC [Concomitant]
     Dosage: 40 MG, DAILY
     Route: 048
  3. CRESTOR [Concomitant]
     Dosage: 2.5 MG, DAILY
     Route: 048
  4. AMARYL [Concomitant]
     Dosage: 0.5 MG, DAILY
     Route: 048
  5. ADALAT CC [Concomitant]
     Dosage: 40 MG, DAILY
     Route: 048
  6. MELBIN [Concomitant]
     Dosage: 500 MG, DAILY
     Route: 048
  7. TALION [Concomitant]
     Dosage: 20 MG, DAILY
     Route: 048

REACTIONS (1)
  - BLOOD CREATINE PHOSPHOKINASE INCREASED [None]
